FAERS Safety Report 21375057 (Version 2)
Quarter: 2024Q1

REPORT INFORMATION
  Report Type: Spontaneous
  Country: CA (occurrence: None)
  Receive Date: 20220926
  Receipt Date: 20240222
  Transmission Date: 20240410
  Serious: Yes (Hospitalization, Other)
  Sender: FDA-Public Use
  Company Number: CA-PFIZER INC-2019364773

PATIENT
  Age: 77 Year
  Sex: Male

DRUGS (27)
  1. METHOTREXATE [Suspect]
     Active Substance: METHOTREXATE
     Indication: Product used for unknown indication
  2. FOLIC ACID [Suspect]
     Active Substance: FOLIC ACID
     Indication: Product used for unknown indication
  3. CALCIUM CHLORIDE [Suspect]
     Active Substance: CALCIUM CHLORIDE
     Indication: Product used for unknown indication
  4. CORTISONE ACETATE [Suspect]
     Active Substance: CORTISONE ACETATE
     Indication: Pain
  5. CORTISONE ACETATE [Suspect]
     Active Substance: CORTISONE ACETATE
     Indication: Arthritis
  6. CORTISONE ACETATE [Suspect]
     Active Substance: CORTISONE ACETATE
  7. CORTISONE ACETATE [Suspect]
     Active Substance: CORTISONE ACETATE
  8. CORTISONE ACETATE [Suspect]
     Active Substance: CORTISONE ACETATE
  9. CORTISONE ACETATE [Suspect]
     Active Substance: CORTISONE ACETATE
  10. CORTISONE ACETATE [Suspect]
     Active Substance: CORTISONE ACETATE
  11. SANDOSTATIN [Suspect]
     Active Substance: OCTREOTIDE ACETATE
     Indication: Carcinoid tumour of the small bowel
  12. SANDOSTATIN [Suspect]
     Active Substance: OCTREOTIDE ACETATE
  13. SANDOSTATIN [Suspect]
     Active Substance: OCTREOTIDE ACETATE
  14. SANDOSTATIN [Suspect]
     Active Substance: OCTREOTIDE ACETATE
  15. SANDOSTATIN [Suspect]
     Active Substance: OCTREOTIDE ACETATE
  16. CALCIUM CARBONATE [Suspect]
     Active Substance: CALCIUM CARBONATE
     Indication: Product used for unknown indication
  17. DESOXIMETASONE [Suspect]
     Active Substance: DESOXIMETASONE
     Indication: Product used for unknown indication
  18. XGEVA [Suspect]
     Active Substance: DENOSUMAB
     Indication: Neuritis
  19. CALCIUM GLUCONATE [Suspect]
     Active Substance: CALCIUM GLUCONATE
     Indication: Product used for unknown indication
  20. ACETAMINOPHEN [Concomitant]
     Active Substance: ACETAMINOPHEN
  21. CLOPIDOGREL BISULFATE [Concomitant]
     Active Substance: CLOPIDOGREL BISULFATE
  22. LISINOPRIL [Concomitant]
     Active Substance: LISINOPRIL
  23. LOVENOX [Concomitant]
     Active Substance: ENOXAPARIN SODIUM
  24. METOPROLOL [Concomitant]
     Active Substance: METOPROLOL
  25. LASIX [Concomitant]
     Active Substance: FUROSEMIDE
     Indication: Blood pressure increased
  26. LEVOFLOXACIN [Concomitant]
     Active Substance: LEVOFLOXACIN
  27. LEVOFLOXACIN [Concomitant]
     Active Substance: LEVOFLOXACIN

REACTIONS (28)
  - Malignant neoplasm progression [Recovered/Resolved]
  - Metastases to liver [Recovered/Resolved]
  - Abdominal pain [Recovered/Resolved]
  - Arthralgia [Recovered/Resolved]
  - Arthritis [Recovered/Resolved]
  - Blood pressure diastolic increased [Recovered/Resolved]
  - Blood pressure systolic increased [Recovered/Resolved]
  - Cardiac disorder [Recovered/Resolved]
  - Cholelithiasis [Recovered/Resolved]
  - Haemoglobin decreased [Recovered/Resolved]
  - Pain [Recovered/Resolved]
  - Asthenia [Recovered/Resolved]
  - Blood pressure decreased [Recovered/Resolved]
  - Blood test abnormal [Recovered/Resolved]
  - Body temperature decreased [Recovered/Resolved]
  - Carcinoid tumour of the small bowel [Recovered/Resolved]
  - Cough [Recovered/Resolved]
  - Decreased appetite [Recovered/Resolved]
  - Dyspnoea [Recovered/Resolved]
  - Epistaxis [Recovered/Resolved]
  - Fatigue [Recovered/Resolved]
  - General physical health deterioration [Recovered/Resolved]
  - Hypertension [Recovered/Resolved]
  - Influenza like illness [Recovered/Resolved]
  - Metastases to bone [Recovered/Resolved]
  - Pleural effusion [Recovered/Resolved]
  - Weight decreased [Recovered/Resolved]
  - Lung disorder [Recovered/Resolved]
